FAERS Safety Report 12623566 (Version 1)
Quarter: 2016Q3

REPORT INFORMATION
  Report Type: Spontaneous
  Country: US (occurrence: US)
  Receive Date: 20160804
  Receipt Date: 20160804
  Transmission Date: 20161109
  Serious: No
  Sender: FDA-Public Use
  Company Number: US-ACTELION-A-US2016-140238

PATIENT
  Age: 53 Year
  Sex: Male

DRUGS (2)
  1. VELETRI [Suspect]
     Active Substance: EPOPROSTENOL
     Indication: PULMONARY HYPERTENSION
     Dosage: 40 UNK, UNK
     Route: 042
     Dates: start: 20150417
  2. COUMADIN [Concomitant]
     Active Substance: WARFARIN SODIUM

REACTIONS (8)
  - Insomnia [Unknown]
  - Cold sweat [Unknown]
  - Device issue [Unknown]
  - Feeling abnormal [Unknown]
  - Pallor [Unknown]
  - Asthenia [Unknown]
  - Neck pain [Unknown]
  - Pain in extremity [Unknown]
